FAERS Safety Report 8803012 (Version 2)
Quarter: 2013Q2

REPORT INFORMATION
  Report Type: Spontaneous
  Country: GB (occurrence: GB)
  Receive Date: 20120924
  Receipt Date: 20130506
  Transmission Date: 20140414
  Serious: Yes (Hospitalization)
  Sender: FDA-Public Use
  Company Number: GB-ASTRAZENECA-2012SE72512

PATIENT
  Age: 30 Year
  Sex: Female

DRUGS (5)
  1. MARCAINE HEAVY [Suspect]
     Indication: SPINAL ANAESTHESIA
     Route: 037
     Dates: start: 2009
  2. LIDOCAINE [Concomitant]
     Indication: INFILTRATION ANAESTHESIA
     Route: 050
     Dates: start: 2009
  3. AUGMENTIN [Concomitant]
     Indication: PROPHYLAXIS
     Route: 042
     Dates: start: 2009
  4. PARACETAMOL [Concomitant]
     Indication: PAIN
     Route: 048
  5. DICLOFENAC [Concomitant]
     Indication: PAIN
     Dosage: 50-10 MG
     Route: 048

REACTIONS (1)
  - Cauda equina syndrome [Recovered/Resolved]
